FAERS Safety Report 6940164-9 (Version None)
Quarter: 2010Q3

REPORT INFORMATION
  Report Type: 
  Country: None (occurrence: None)
  Receive Date: 20100825
  Receipt Date: 20100818
  Transmission Date: 20110219
  Serious: Yes (Hospitalization)
  Sender: FDA-Public Use
  Company Number: JP-ASTRAZENECA-2010SE34677

PATIENT
  Age: 57 Year
  Sex: Male
  Weight: 62 kg

DRUGS (12)
  1. IRESSA [Suspect]
     Indication: LUNG ADENOCARCINOMA
     Route: 048
     Dates: start: 20100417
  2. OXYCONTIN [Suspect]
     Indication: CANCER PAIN
     Route: 048
     Dates: start: 20100706, end: 20100726
  3. CLARITHROMYCIN [Concomitant]
     Indication: CHRONIC OBSTRUCTIVE PULMONARY DISEASE
     Route: 048
  4. OMEPRAL [Concomitant]
     Indication: GASTRIC ULCER
     Route: 048
  5. LOXONIN [Concomitant]
     Indication: CANCER PAIN
     Route: 048
  6. ALLELOCK [Concomitant]
     Indication: RHINITIS ALLERGIC
     Route: 048
  7. ALDACTONE [Concomitant]
     Indication: HYPERTENSION
     Route: 048
     Dates: end: 20100719
  8. LASIX [Concomitant]
     Indication: HYPERTENSION
     Route: 048
     Dates: start: 20100720
  9. OXINORM [Concomitant]
     Indication: CANCER PAIN
     Route: 048
     Dates: start: 20100706
  10. MAGMITT [Concomitant]
     Indication: CONSTIPATION
     Route: 048
     Dates: start: 20100706
  11. NOVAMIN [Concomitant]
     Indication: NAUSEA
     Route: 048
     Dates: start: 20100706
  12. DUROTEP [Concomitant]
     Indication: CANCER PAIN
     Route: 062
     Dates: start: 20100727

REACTIONS (3)
  - HAEMOTHORAX [None]
  - PARONYCHIA [None]
  - RENAL DISORDER [None]
